FAERS Safety Report 9816405 (Version 1)
Quarter: 2014Q1

REPORT INFORMATION
  Report Type: Spontaneous
  Country: US (occurrence: US)
  Receive Date: 20140114
  Receipt Date: 20140114
  Transmission Date: 20141002
  Serious: No
  Sender: FDA-Public Use
  Company Number: US-TARO-2013P1005174

PATIENT
  Age: 86 Year
  Sex: Female
  Weight: 52.62 kg

DRUGS (4)
  1. DESOXIMETASONE CREAM USP 0.05% [Suspect]
     Route: 061
     Dates: start: 20130321
  2. DILTIAZEM ER [Concomitant]
  3. MICARDIS [Concomitant]
  4. CLONIDINE 0.1% [Concomitant]

REACTIONS (4)
  - Weight decreased [Not Recovered/Not Resolved]
  - Chromaturia [Recovering/Resolving]
  - Drug ineffective [Not Recovered/Not Resolved]
  - Pruritus [Unknown]
